FAERS Safety Report 8499420 (Version 2)
Quarter: 2012Q4

REPORT INFORMATION
  Report Type: 
  Country: US (occurrence: US)
  Receive Date: 20120409
  Receipt Date: 20121003
  Transmission Date: 20130627
  Serious: Yes (Hospitalization)
  Sender: FDA-Public Use
  Company Number: US-BAYER-2012-032870

PATIENT
  Age: 41 Year
  Sex: Female
  Weight: 99.32 kg

DRUGS (22)
  1. YAZ [Suspect]
     Indication: MENOPAUSAL SYMPTOMS
     Dosage: UNK
  2. YASMIN [Suspect]
     Indication: PREMENSTRUAL SYNDROME
     Dosage: UNK
     Dates: start: 20100823, end: 20110203
  3. ADVAIR [Concomitant]
     Indication: ASTHMA
     Dosage: UNK
     Dates: start: 2001
  4. PROVENTIL [Concomitant]
     Indication: ASTHMA
     Dosage: 2puffs 4 times, PRN, daily
     Dates: start: 2001
  5. PROVENTIL [Concomitant]
     Indication: ASTHMA
     Dosage: 2 puff(s),4 times as neede daily
  6. SINGULAIR [Concomitant]
     Indication: ASTHMA
     Dosage: UNK
     Dates: start: 2001
  7. IRON [Concomitant]
  8. FISH OIL [Concomitant]
  9. METHYLSULFONYLMETHANE [Concomitant]
  10. MULTIVITAMIN WITH MINERALS [Concomitant]
  11. CALCIUM [Concomitant]
  12. IBUPROFEN [Concomitant]
     Dosage: 800 mg, TID as needed
  13. CYCLOBENZAPRINE [Concomitant]
     Dosage: 10 mg, UNK
  14. METROGEL [Concomitant]
     Dosage: UNK
     Route: 061
  15. NAPROXEN [Concomitant]
     Dosage: 500 mg, UNK
  16. TRAMADOL HYDROCHLORIDE [Concomitant]
     Dosage: 50 mg, UNK
  17. DIPHENHYDRAMINE [Concomitant]
     Dosage: 12.5, IV Push ,once
     Route: 042
  18. KETOROLAC [Concomitant]
     Indication: HEADACHE
     Dosage: 30 mg,IV push, ONCE
     Route: 042
  19. PROCHLORPERAZINE [Concomitant]
     Indication: NAUSEA
     Dosage: 10 mg, IV push, ONCE
     Route: 042
  20. DEPO-MEDROL [Concomitant]
     Dosage: 40 mg, UNK
  21. HYDROCODONE W/ACETAMINOPHEN [Concomitant]
     Dosage: 5-500mg every 4 to 6 hours, PRN
  22. NSAID^S [Concomitant]

REACTIONS (7)
  - Deep vein thrombosis [Recovered/Resolved]
  - Pulmonary embolism [None]
  - Injury [Recovered/Resolved]
  - Pain in extremity [Recovered/Resolved]
  - Chest pain [None]
  - Dyspnoea [None]
  - Pain [None]
